FAERS Safety Report 6503087-5 (Version None)
Quarter: 2009Q4

REPORT INFORMATION
  Report Type: 
  Country: None (occurrence: None)
  Receive Date: 20091201
  Receipt Date: 20090305
  Transmission Date: 20100525
  Serious: Yes (Other)
  Sender: FDA-Public Use
  Company Number: 187238USA

PATIENT

DRUGS (2)
  1. CARBOPLATIN [Suspect]
  2. CARBOPLATIN [Suspect]

REACTIONS (3)
  - ANAPHYLACTIC REACTION [None]
  - ERYTHEMA [None]
  - SWELLING [None]
